FAERS Safety Report 5290944-3 (Version None)
Quarter: 2007Q2

REPORT INFORMATION
  Report Type: 
  Country: None (occurrence: None)
  Receive Date: 20070409
  Receipt Date: 20070328
  Transmission Date: 20071010
  Serious: Yes (Other)
  Sender: FDA-Public Use
  Company Number: US-PFIZER INC-2007024901

PATIENT
  Sex: Male
  Weight: 72.6 kg

DRUGS (6)
  1. ZITHROMAX [Suspect]
     Indication: BRONCHITIS
     Route: 048
  2. ZITHROMAX [Suspect]
     Indication: PNEUMONIA
  3. BENADRYL [Suspect]
     Indication: INSOMNIA
  4. HYDROCHLOROTHIAZIDE [Concomitant]
  5. ATENOLOL [Concomitant]
  6. ALLOPURINOL [Concomitant]

REACTIONS (4)
  - CONFUSIONAL STATE [None]
  - DISORIENTATION [None]
  - HALLUCINATION, AUDITORY [None]
  - ILLUSION [None]
